FAERS Safety Report 6466786-X (Version None)
Quarter: 2009Q4

REPORT INFORMATION
  Report Type: 
  Country: None (occurrence: None)
  Receive Date: 20091202
  Receipt Date: 20091002
  Transmission Date: 20100525
  Serious: No
  Sender: FDA-Public Use
  Company Number: US-BAYER-200935796NA

PATIENT
  Age: 47 Year
  Sex: Female
  Weight: 84 kg

DRUGS (9)
  1. ULTRAVIST 370 [Suspect]
     Indication: COMPUTERISED TOMOGRAM
     Dosage: TOTAL DAILY DOSE: 80 ML  UNIT DOSE: 500 ML
     Route: 042
     Dates: start: 20091002, end: 20091002
  2. CELEBREX [Concomitant]
  3. TRAMADOL HCL [Concomitant]
  4. LYRICA [Concomitant]
  5. PREDNISONE TAB [Concomitant]
  6. EVOXAC [Concomitant]
  7. METHOTREXATE [Concomitant]
  8. KLONOPIN [Concomitant]
  9. SYNTHROID [Concomitant]

REACTIONS (2)
  - PRURITUS [None]
  - URTICARIA [None]
